FAERS Safety Report 8262257-9 (Version None)
Quarter: 2012Q1

REPORT INFORMATION
  Report Type: 
  Country: None (occurrence: None)
  Receive Date: 20120327
  Receipt Date: 20090421
  Transmission Date: 20120608
  Serious: Yes (Hospitalization)
  Sender: FDA-Public Use
  Company Number: PHEH2009US03971

PATIENT
  Age: 65 Year
  Sex: Male

DRUGS (1)
  1. GLEEVEC [Suspect]
     Indication: ACUTE MYELOID LEUKAEMIA
     Dosage: 200 MG, TID, ORAL
     Route: 048

REACTIONS (2)
  - ACUTE MYELOID LEUKAEMIA RECURRENT [None]
  - DRUG INEFFECTIVE [None]
